FAERS Safety Report 10111193 (Version 1)
Quarter: 2014Q2

REPORT INFORMATION
  Report Type: Spontaneous
  Country: US (occurrence: None)
  Receive Date: 20140421
  Receipt Date: 20140421
  Transmission Date: 20141212
  Serious: No
  Sender: FDA-Public Use
  Company Number: AEGR000277

PATIENT
  Age: 67 Year
  Sex: Female
  Weight: 49.9 kg

DRUGS (9)
  1. JUXTAPID (LOMITAPIDE) CAPSULE, 5MG [Suspect]
     Indication: TYPE IIA HYPERLIPIDAEMIA
     Route: 048
     Dates: start: 20140102, end: 20140126
  2. ASPIRIN (ACETYLSALICYLIC ACID) [Concomitant]
  3. MULTIVITAMIN (VITAMINS NOS) [Concomitant]
  4. PROBIOTIC (BIFIDOBACTERIUM LACTIS) [Concomitant]
  5. CALCIUM (CALCIUM) [Concomitant]
  6. VITAMIN D3 (COLECALCIFEROL) [Concomitant]
  7. PRILOSEC (OMEPRAZOLE) [Concomitant]
  8. LABETALOL (LABETALOL) [Concomitant]
  9. AMLODIPINE (AMLODIPINE) [Concomitant]

REACTIONS (1)
  - Nausea [None]
